FAERS Safety Report 9641504 (Version 4)
Quarter: 2014Q1

REPORT INFORMATION
  Report Type: Report from Study
  Country: GR (occurrence: GR)
  Receive Date: 20131023
  Receipt Date: 20140305
  Transmission Date: 20141002
  Serious: Yes (Hospitalization)
  Sender: FDA-Public Use
  Company Number: GR-ABBVIE-13P-066-1158866-00

PATIENT
  Age: 30 Year
  Sex: Female

DRUGS (5)
  1. HUMIRA [Suspect]
     Indication: CROHN^S DISEASE
     Route: 058
     Dates: start: 20131004, end: 20131018
  2. HUMIRA [Suspect]
     Route: 058
     Dates: start: 20131023, end: 201311
  3. HUMIRA [Suspect]
     Dates: start: 20140203
  4. METHOTREXATE [Concomitant]
     Indication: PRODUCT USED FOR UNKNOWN INDICATION
  5. ASACOL [Concomitant]
     Indication: PRODUCT USED FOR UNKNOWN INDICATION

REACTIONS (4)
  - Gastrointestinal inflammation [Recovering/Resolving]
  - Uterine polyp [Unknown]
  - Diarrhoea [Not Recovered/Not Resolved]
  - Crohn^s disease [Recovering/Resolving]
